FAERS Safety Report 4628112-8 (Version None)
Quarter: 2005Q2

REPORT INFORMATION
  Report Type: 
  Country: None (occurrence: None)
  Receive Date: 20050406
  Receipt Date: 20050106
  Transmission Date: 20051028
  Serious: Yes (Other)
  Sender: FDA-Public Use
  Company Number: JP-GLAXOSMITHKLINE-B0364195A

PATIENT
  Age: 57 Year
  Sex: Female

DRUGS (2)
  1. ZEFIX [Suspect]
     Indication: HEPATITIS B
     Dosage: 100MG PER DAY
     Route: 048
     Dates: start: 20041202
  2. GASTER D [Concomitant]
     Route: 048
     Dates: start: 20041126

REACTIONS (1)
  - APLASIA PURE RED CELL [None]
